FAERS Safety Report 8070913-0 (Version None)
Quarter: 2012Q1

REPORT INFORMATION
  Report Type: 
  Country: None (occurrence: None)
  Receive Date: 20120125
  Receipt Date: 20120119
  Transmission Date: 20120608
  Serious: No
  Sender: FDA-Public Use
  Company Number: US-PFIZER INC-2012016976

PATIENT
  Age: 72 Year
  Sex: Female

DRUGS (3)
  1. CEPHALEXIN [Concomitant]
     Indication: URINARY TRACT INFECTION
     Dosage: 250 MG, DAILY
  2. ACIDOPHILUS [Concomitant]
     Indication: DISBACTERIOSIS
     Dosage: UNK
  3. MEDROL [Suspect]
     Indication: ASTHMA
     Dosage: 4 MG, DAILY
     Dates: start: 20120106, end: 20120112

REACTIONS (3)
  - MUSCLE SPASMS [None]
  - MUSCULAR WEAKNESS [None]
  - PAIN IN EXTREMITY [None]
